FAERS Safety Report 9527044 (Version 1)
Quarter: 2013Q3

REPORT INFORMATION
  Report Type: Spontaneous
  Country: US (occurrence: US)
  Receive Date: 20130916
  Receipt Date: 20130916
  Transmission Date: 20140515
  Serious: Yes (Other)
  Sender: FDA-Public Use
  Company Number: US-BAXTER-2013BAX036528

PATIENT
  Sex: 0

DRUGS (3)
  1. NEXTERONE_AMIODARONE, HYDROCHLORIDE 1.50 MG/ML_SOLUTION FOR INFUSION_B [Suspect]
     Indication: VENTRICULAR TACHYCARDIA
     Dosage: LOADING DOSE
     Route: 042
  2. NEXTERONE_AMIODARONE, HYDROCHLORIDE 1.50 MG/ML_SOLUTION FOR INFUSION_B [Suspect]
     Dosage: 20 - 30 MG/KG
  3. NEXTERONE_AMIODARONE, HYDROCHLORIDE 1.50 MG/ML_SOLUTION FOR INFUSION_B [Suspect]
     Dosage: ADDITIONAL BOLUSES GIVEN AS NEEDED ALONG WITH INFUSION
     Route: 040

REACTIONS (1)
  - Hypotension [Unknown]
